FAERS Safety Report 15847729 (Version 1)
Quarter: 2019Q1

REPORT INFORMATION
  Report Type: Spontaneous
  Country: PK (occurrence: US)
  Receive Date: 20190121
  Receipt Date: 20190121
  Transmission Date: 20190417
  Serious: Yes (Hospitalization)
  Sender: FDA-Public Use
  Company Number: PHHY2019US006950

PATIENT
  Age: 37 Year
  Sex: Female

DRUGS (7)
  1. PYRAZINAMIDE. [Suspect]
     Active Substance: PYRAZINAMIDE
     Indication: DISSEMINATED TUBERCULOSIS
  2. ISONIAZID. [Suspect]
     Active Substance: ISONIAZID
     Indication: TUBERCULOSIS
     Route: 065
  3. RIFAMPICIN [Suspect]
     Active Substance: RIFAMPIN
     Indication: TUBERCULOSIS
     Route: 065
  4. ISONIAZID. [Suspect]
     Active Substance: ISONIAZID
     Indication: DISSEMINATED TUBERCULOSIS
  5. ETHAMBUTOL [Suspect]
     Active Substance: ETHAMBUTOL HYDROCHLORIDE
     Indication: TUBERCULOSIS
     Route: 065
  6. ETHAMBUTOL [Suspect]
     Active Substance: ETHAMBUTOL HYDROCHLORIDE
     Indication: DISSEMINATED TUBERCULOSIS
  7. PYRAZINAMIDE. [Suspect]
     Active Substance: PYRAZINAMIDE
     Indication: TUBERCULOSIS
     Route: 065

REACTIONS (9)
  - Hilar lymphadenopathy [Recovered/Resolved]
  - Hepatic lesion [Recovered/Resolved]
  - Vision blurred [Recovered/Resolved]
  - Disseminated tuberculosis [Recovered/Resolved]
  - Acute kidney injury [Recovered/Resolved]
  - Granuloma [Recovered/Resolved]
  - Abdominal lymphadenopathy [Recovered/Resolved]
  - Pulmonary mass [Recovered/Resolved]
  - Splenic lesion [Recovered/Resolved]
